FAERS Safety Report 5742273-9 (Version None)
Quarter: 2008Q2

REPORT INFORMATION
  Report Type: 
  Country: None (occurrence: None)
  Receive Date: 20080514
  Receipt Date: 20070724
  Transmission Date: 20081010
  Serious: Yes (Other)
  Sender: FDA-Public Use
  Company Number: US200707005998

PATIENT
  Age: 54 Year
  Sex: Female

DRUGS (8)
  1. KEFLEX [Suspect]
     Indication: INFLUENZA
     Dates: start: 20070201
  2. BONIVA (BANDRONATE SODIUM) [Concomitant]
  3. RANITIDINE [Concomitant]
  4. FLONASE [Concomitant]
  5. FLOVENT [Concomitant]
  6. SPIRIVA [Concomitant]
  7. TYLENOL /SCH/(PARACETAMOL) [Concomitant]
  8. ASPIRIN [Concomitant]

REACTIONS (4)
  - BONE DENSITOMETRY [None]
  - CONSTIPATION [None]
  - DIARRHOEA [None]
  - SMALL INTESTINAL PERFORATION [None]
